FAERS Safety Report 7938201-8 (Version None)
Quarter: 2011Q4

REPORT INFORMATION
  Report Type: 
  Country: None (occurrence: None)
  Receive Date: 20111123
  Receipt Date: 20110916
  Transmission Date: 20120403
  Serious: No
  Sender: FDA-Public Use
  Company Number: US-BRISTOL-MYERS SQUIBB COMPANY-16058125

PATIENT
  Age: 77 Year
  Sex: Female

DRUGS (2)
  1. LEVEMIR [Suspect]
  2. ONGLYZA [Suspect]
     Dosage: RECEIVED FOR ALMOST 2 YRS

REACTIONS (1)
  - RASH [None]
